FAERS Safety Report 5409731-8 (Version None)
Quarter: 2007Q3

REPORT INFORMATION
  Report Type: 
  Country: None (occurrence: None)
  Receive Date: 20070809
  Receipt Date: 20070730
  Transmission Date: 20080115
  Serious: Yes (Hospitalization, Other)
  Sender: FDA-Public Use
  Company Number: B0477628A

PATIENT
  Age: 58 Year
  Sex: Male
  Weight: 79 kg

DRUGS (2)
  1. AVANDAMET [Suspect]
     Dosage: 1TAB TWICE PER DAY
     Route: 048
     Dates: start: 20061001, end: 20070615
  2. AMARYL [Concomitant]
     Dosage: 6MG PER DAY
     Route: 065
     Dates: start: 20061001

REACTIONS (7)
  - CARDIAC FAILURE [None]
  - CORONARY ARTERY STENOSIS [None]
  - DYSPNOEA [None]
  - ORTHOPNOEA [None]
  - PLEURISY [None]
  - RESPIRATORY TRACT INFECTION [None]
  - TREATMENT NONCOMPLIANCE [None]
